FAERS Safety Report 4360890-8 (Version None)
Quarter: 2004Q2

REPORT INFORMATION
  Report Type: 
  Country: None (occurrence: None)
  Receive Date: 20040517
  Receipt Date: 20040423
  Transmission Date: 20050107
  Serious: No
  Sender: FDA-Public Use
  Company Number: 2003GB00933

PATIENT
  Sex: Male

DRUGS (1)
  1. LOSEC [Suspect]
     Dates: start: 20030101

REACTIONS (4)
  - ABORTION SPONTANEOUS [None]
  - DRUG EXPOSURE DURING PREGNANCY [None]
  - SEMEN ABNORMAL [None]
  - TRANSMISSION OF DRUG VIA SEMEN [None]
